FAERS Safety Report 8065894-X (Version None)
Quarter: 2012Q1

REPORT INFORMATION
  Report Type: 
  Country: None (occurrence: None)
  Receive Date: 20120117
  Receipt Date: 20120111
  Transmission Date: 20120608
  Serious: Yes (Other)
  Sender: FDA-Public Use
  Company Number: 2011MA018118

PATIENT
  Age: 34 Month
  Sex: Female
  Weight: 11 kg

DRUGS (1)
  1. MINOXIDIL [Suspect]
     Indication: PRODUCT USED FOR UNKNOWN INDICATION
     Dosage: 100 MG; PO
     Route: 048

REACTIONS (6)
  - VOMITING [None]
  - ACCIDENTAL DRUG INTAKE BY CHILD [None]
  - INCORRECT ROUTE OF DRUG ADMINISTRATION [None]
  - SINUS TACHYCARDIA [None]
  - BLOOD PRESSURE DECREASED [None]
  - FLUSHING [None]
